FAERS Safety Report 19102032 (Version 1)
Quarter: 2021Q2

REPORT INFORMATION
  Report Type: Spontaneous
  Country: CA (occurrence: CA)
  Receive Date: 20210407
  Receipt Date: 20210407
  Transmission Date: 20210717
  Serious: Yes (Other)
  Sender: FDA-Public Use
  Company Number: NVSC2021CA073857

PATIENT
  Age: 17 Year
  Sex: Female
  Weight: 53 kg

DRUGS (2)
  1. METHOTREXATE. [Suspect]
     Active Substance: METHOTREXATE
     Indication: PRODUCT USED FOR UNKNOWN INDICATION
     Route: 065
  2. ERELZI [Suspect]
     Active Substance: ETANERCEPT-SZZS
     Indication: JUVENILE IDIOPATHIC ARTHRITIS
     Dosage: 50 MG, QW (1 EVERY 1 WEEKS)
     Route: 058

REACTIONS (5)
  - Chest pain [Recovered/Resolved]
  - Dizziness [Recovered/Resolved]
  - Throat tightness [Recovered/Resolved]
  - Syncope [Recovered/Resolved]
  - Asthenia [Recovered/Resolved]
